FAERS Safety Report 5140149-1 (Version None)
Quarter: 2006Q4

REPORT INFORMATION
  Report Type: 
  Country: None (occurrence: None)
  Receive Date: 20061024
  Receipt Date: 20061004
  Transmission Date: 20070319
  Serious: Yes (Other)
  Sender: FDA-Public Use
  Company Number: US200610000991

PATIENT
  Age: 72 Year
  Sex: Female

DRUGS (9)
  1. FORTEO [Suspect]
     Indication: OSTEOPOROSIS
     Dates: start: 20060828, end: 20060831
  2. FORTEO [Concomitant]
  3. CYCLOSPORINE [Concomitant]
  4. PREDNISONE TAB [Concomitant]
  5. IMURAN [Concomitant]
  6. CATAPRES [Concomitant]
  7. ATENOLOL [Concomitant]
  8. CALCIUM (CALCIUM) [Concomitant]
  9. ACYCLOVIR [Concomitant]

REACTIONS (17)
  - ABNORMAL BEHAVIOUR [None]
  - BLOOD PRESSURE INCREASED [None]
  - CHEST PAIN [None]
  - CONTUSION [None]
  - FEAR [None]
  - FEELING ABNORMAL [None]
  - HEADACHE [None]
  - HYPERSENSITIVITY [None]
  - IMPAIRED WORK ABILITY [None]
  - INSOMNIA [None]
  - IRRITABILITY [None]
  - MUSCLE RIGIDITY [None]
  - MUSCLE SPASMS [None]
  - MUSCULOSKELETAL STIFFNESS [None]
  - PAIN [None]
  - PHARMACEUTICAL PRODUCT COMPLAINT [None]
  - POOR QUALITY SLEEP [None]
